FAERS Safety Report 5450590-5 (Version None)
Quarter: 2007Q3

REPORT INFORMATION
  Report Type: 
  Country: None (occurrence: None)
  Receive Date: 20070912
  Receipt Date: 20070907
  Transmission Date: 20080115
  Serious: Yes (Other)
  Sender: FDA-Public Use
  Company Number: US-GENENTECH-247355

PATIENT
  Sex: Female
  Weight: 71.655 kg

DRUGS (1)
  1. XOLAIR [Suspect]
     Indication: ASTHMA
     Dosage: UNK, Q2W
     Route: 058
     Dates: start: 20031201, end: 20040703

REACTIONS (1)
  - ANAPHYLACTIC REACTION [None]
